FAERS Safety Report 14343107 (Version 2)
Quarter: 2018Q1

REPORT INFORMATION
  Report Type: Report from Study
  Country: DE (occurrence: DE)
  Receive Date: 20180102
  Receipt Date: 20180117
  Transmission Date: 20180509
  Serious: Yes (Life-Threatening, Hospitalization)
  Sender: FDA-Public Use
  Company Number: PHHY2017DE193511

PATIENT
  Age: 77 Year
  Sex: Female
  Weight: 61 kg

DRUGS (3)
  1. AZITHROMYCIN - 1 A PHARMA [Suspect]
     Active Substance: AZITHROMYCIN DIHYDRATE
     Indication: PNEUMONIA
     Dosage: 1 DF, QD,
     Route: 065
     Dates: start: 20171214, end: 20171216
  2. AZITHROMYCIN - 1 A PHARMA [Suspect]
     Active Substance: AZITHROMYCIN DIHYDRATE
     Indication: BRONCHITIS
  3. AZITHROMYCIN - 1 A PHARMA [Suspect]
     Active Substance: AZITHROMYCIN DIHYDRATE
     Indication: PNEUMONITIS

REACTIONS (5)
  - Asphyxia [Recovering/Resolving]
  - Dyspnoea [Recovering/Resolving]
  - Aphasia [Recovering/Resolving]
  - Stress cardiomyopathy [Unknown]
  - Troponin increased [Unknown]

NARRATIVE: CASE EVENT DATE: 20171217
